FAERS Safety Report 20707691 (Version 1)
Quarter: 2022Q2

REPORT INFORMATION
  Report Type: Report from Study
  Country: US (occurrence: US)
  Receive Date: 20220413
  Receipt Date: 20220413
  Transmission Date: 20220720
  Serious: Yes (Hospitalization, Other)
  Sender: FDA-Public Use
  Company Number: US-ABBVIE-22K-163-4349328-00

PATIENT
  Age: 69 Year
  Sex: Female

DRUGS (13)
  1. HUMIRA [Suspect]
     Active Substance: ADALIMUMAB
     Indication: Colitis ulcerative
     Route: 058
     Dates: start: 2019, end: 20220107
  2. HUMIRA [Suspect]
     Active Substance: ADALIMUMAB
     Route: 058
     Dates: start: 20220128
  3. GABAPENTIN [Concomitant]
     Active Substance: GABAPENTIN
     Indication: Back pain
  4. MESALAMINE [Concomitant]
     Active Substance: MESALAMINE
     Indication: Colitis ulcerative
     Route: 048
  5. PRILOSEC [Concomitant]
     Active Substance: OMEPRAZOLE MAGNESIUM
     Indication: Gastrooesophageal reflux disease
     Route: 048
  6. ROSUVASTATIN CALCIUM [Concomitant]
     Active Substance: ROSUVASTATIN CALCIUM
     Indication: Blood cholesterol increased
     Route: 048
  7. COENZYME Q10 [Concomitant]
     Active Substance: DIETARY SUPPLEMENT\UBIDECARENONE
     Indication: Adverse drug reaction
  8. IBUPROFEN [Concomitant]
     Active Substance: IBUPROFEN
     Indication: Pain management
     Route: 048
  9. VALSARTAN [Concomitant]
     Active Substance: VALSARTAN
     Indication: Hypertension
     Route: 048
  10. HYDROCHLOROTHIAZIDE [Concomitant]
     Active Substance: HYDROCHLOROTHIAZIDE
     Indication: Hypertension
     Route: 048
  11. MODERNA COVID-19 VACCINE [Concomitant]
     Active Substance: ELASOMERAN
     Indication: COVID-19 immunisation
     Route: 030
     Dates: start: 20210419, end: 20210419
  12. MODERNA COVID-19 VACCINE [Concomitant]
     Active Substance: ELASOMERAN
     Route: 030
     Dates: start: 20210517, end: 20210517
  13. MODERNA COVID-19 VACCINE [Concomitant]
     Active Substance: ELASOMERAN
     Route: 030
     Dates: start: 20211022, end: 20211022

REACTIONS (4)
  - Lung disorder [Recovered/Resolved]
  - Lung adenocarcinoma stage I [Recovering/Resolving]
  - Procedural pain [Not Recovered/Not Resolved]
  - Lung disorder [Unknown]

NARRATIVE: CASE EVENT DATE: 20220101
